FAERS Safety Report 17457773 (Version 5)
Quarter: 2021Q4

REPORT INFORMATION
  Report Type: Spontaneous
  Country: AU (occurrence: AT)
  Receive Date: 20200225
  Receipt Date: 20211022
  Transmission Date: 20220303
  Serious: Yes (Other)
  Sender: FDA-Public Use
  Company Number: AT-JNJFOC-20200219661

PATIENT
  Age: 45 Year
  Sex: Male

DRUGS (15)
  1. PALIPERIDONE PALMITATE [Suspect]
     Active Substance: PALIPERIDONE PALMITATE
     Indication: Schizophrenia
     Dosage: FIRST DOSE
     Route: 030
     Dates: start: 20200205, end: 20200205
  2. PALIPERIDONE PALMITATE [Suspect]
     Active Substance: PALIPERIDONE PALMITATE
     Dosage: 2ND DOSE
     Route: 030
     Dates: start: 20200212, end: 20200212
  3. PALIPERIDONE PALMITATE [Suspect]
     Active Substance: PALIPERIDONE PALMITATE
     Dosage: DAY 24: 156 MG, UNK
     Route: 030
  4. PALIPERIDONE PALMITATE [Suspect]
     Active Substance: PALIPERIDONE PALMITATE
     Dosage: DAY 20: 234 MG, UNK
     Route: 030
  5. PALIPERIDONE PALMITATE [Suspect]
     Active Substance: PALIPERIDONE PALMITATE
     Indication: Schizophrenia
     Route: 030
  6. PALIPERIDONE PALMITATE [Suspect]
     Active Substance: PALIPERIDONE PALMITATE
  7. PALIPERIDONE PALMITATE [Suspect]
     Active Substance: PALIPERIDONE PALMITATE
  8. DOMINAL (PROTHIPENDYL HYDROCHLORIDE) [Suspect]
     Active Substance: PROTHIPENDYL HYDROCHLORIDE
     Indication: Sleep disorder
     Dosage: (DAY 9: 80 MG, FROM DAY 10: 40 MG)
     Route: 048
     Dates: start: 20200127
  9. LISINOPRIL [Suspect]
     Active Substance: LISINOPRIL
     Indication: Essential hypertension
     Route: 065
     Dates: start: 20200128, end: 20200213
  10. HYDROCHLOROTHIAZIDE [Suspect]
     Active Substance: HYDROCHLOROTHIAZIDE
     Indication: Essential hypertension
     Route: 065
     Dates: start: 20200128, end: 20200213
  11. PROTHIPENDYL [Suspect]
     Active Substance: PROTHIPENDYL
     Indication: Sleep disorder
     Dosage: 80 MG, UNKNOWN, DAY 9
     Route: 065
  12. AMLODIPINE [Concomitant]
     Active Substance: AMLODIPINE BESYLATE
     Indication: Hypertension
     Route: 065
  13. RISPERIDONE [Concomitant]
     Active Substance: RISPERIDONE
     Indication: Schizophrenia
  14. CARBAMAZEPINE [Concomitant]
     Active Substance: CARBAMAZEPINE
  15. SODIUM LACTATE [Concomitant]
     Active Substance: SODIUM LACTATE
     Indication: Prophylaxis
     Route: 042

REACTIONS (1)
  - Rhabdomyolysis [Recovering/Resolving]

NARRATIVE: CASE EVENT DATE: 20210209
